FAERS Safety Report 4796886-1 (Version None)
Quarter: 2005Q4

REPORT INFORMATION
  Report Type: 
  Country: None (occurrence: None)
  Receive Date: 20051006
  Receipt Date: 20051006
  Transmission Date: 20060501
  Serious: Yes (Hospitalization)
  Sender: FDA-Public Use
  Company Number: None

PATIENT
  Age: 65 Year
  Sex: Female
  Weight: 52 kg

DRUGS (12)
  1. AMIODARONE [Suspect]
     Indication: ATRIAL FIBRILLATION
     Dosage: 200MG PO QD
     Route: 048
     Dates: start: 20041115, end: 20050111
  2. REGULAR INSULIN [Concomitant]
  3. EPOGEN [Concomitant]
  4. ENALAPRIL [Concomitant]
  5. HYDROCORTISONE [Concomitant]
  6. PAROXETINE HCL [Concomitant]
  7. MORPHINE [Concomitant]
  8. TEMAZEPAM [Concomitant]
  9. ALBUTEROL [Concomitant]
  10. IPRATROPIUM BROMIDE [Concomitant]
  11. FLUTICASONE [Concomitant]
  12. FERROUS SULFATE TAB [Concomitant]

REACTIONS (1)
  - BLOOD THYROID STIMULATING HORMONE INCREASED [None]
